FAERS Safety Report 17551365 (Version 1)
Quarter: 2020Q1

REPORT INFORMATION
  Report Type: Spontaneous
  Country: US (occurrence: US)
  Receive Date: 20200317
  Receipt Date: 20200317
  Transmission Date: 20200409
  Serious: Yes (Disabling, Other)
  Sender: FDA-Public Use
  Company Number: None

PATIENT
  Age: 70 Year
  Sex: Male
  Weight: 112.5 kg

DRUGS (7)
  1. PREGOBILINI [Concomitant]
  2. MUTI VITAMIN [Concomitant]
  3. CYMBALTA [Concomitant]
     Active Substance: DULOXETINE HYDROCHLORIDE
  4. PREGABALIN. [Suspect]
     Active Substance: PREGABALIN
     Indication: NEUROPATHY PERIPHERAL
     Route: 048
     Dates: start: 20190111
  5. VIT D [Concomitant]
     Active Substance: VITAMIN D NOS
  6. BUSPERONE [Concomitant]
  7. GEMFIBRAZIL [Concomitant]

REACTIONS (10)
  - Injury [None]
  - Condition aggravated [None]
  - Ill-defined disorder [None]
  - Panic attack [None]
  - Disturbance in social behaviour [None]
  - Vertigo [None]
  - Ventricular extrasystoles [None]
  - Muscle spasms [None]
  - Mental disorder [None]
  - Depression [None]

NARRATIVE: CASE EVENT DATE: 20191130
